FAERS Safety Report 7096631-3 (Version None)
Quarter: 2010Q4

REPORT INFORMATION
  Report Type: 
  Country: None (occurrence: None)
  Receive Date: 20101110
  Receipt Date: 20101110
  Transmission Date: 20110411
  Serious: Yes (Life-Threatening, Hospitalization, Other)
  Sender: FDA-Public Use
  Company Number: None

PATIENT
  Age: 42 Year
  Sex: Female
  Weight: 72.5755 kg

DRUGS (1)
  1. LUPRON [Suspect]
     Dosage: 3.75 1 INJECTION FRO 2 OTHER
     Route: 050

REACTIONS (2)
  - MEMORY IMPAIRMENT [None]
  - PRODUCT QUALITY ISSUE [None]
